FAERS Safety Report 24723709 (Version 1)
Quarter: 2024Q4

REPORT INFORMATION
  Report Type: Spontaneous
  Country: US (occurrence: US)
  Receive Date: 20241211
  Receipt Date: 20241211
  Transmission Date: 20250114
  Serious: No
  Sender: SANOFI AVENTIS
  Company Number: US-SA-2024SA364786

PATIENT
  Sex: Female

DRUGS (2)
  1. DUPIXENT [Suspect]
     Active Substance: DUPILUMAB
     Indication: Asthma
     Dosage: 300 MG
     Route: 058
     Dates: start: 202410
  2. DUPIXENT [Suspect]
     Active Substance: DUPILUMAB
     Dosage: 600.000MG 1X
     Route: 058
     Dates: start: 20241010, end: 20241010

REACTIONS (5)
  - Dry eye [Unknown]
  - Eye pruritus [Unknown]
  - Condition aggravated [Unknown]
  - Upper respiratory tract congestion [Unknown]
  - Throat irritation [Unknown]
